FAERS Safety Report 24582107 (Version 3)
Quarter: 2024Q4

REPORT INFORMATION
  Report Type: Spontaneous
  Country: PL (occurrence: PL)
  Receive Date: 20241105
  Receipt Date: 20241226
  Transmission Date: 20250115
  Serious: Yes (Hospitalization)
  Sender: BIOGEN
  Company Number: PL-BIOGEN-2024BI01288922

PATIENT
  Age: 31 Year
  Sex: Female

DRUGS (1)
  1. SPINRAZA [Suspect]
     Active Substance: NUSINERSEN
     Indication: Spinal muscular atrophy
     Route: 050
     Dates: start: 20240820, end: 20240917

REACTIONS (7)
  - Musculoskeletal procedural complication [Recovered/Resolved]
  - CSF pressure decreased [Recovered/Resolved]
  - Procedural pain [Recovered/Resolved]
  - Procedural vomiting [Recovered/Resolved]
  - Post lumbar puncture syndrome [Recovered/Resolved]
  - Bone marrow oedema [Unknown]
  - Post lumbar puncture syndrome [Recovered/Resolved]

NARRATIVE: CASE EVENT DATE: 20240820
